FAERS Safety Report 23503395 (Version 1)
Quarter: 2024Q1

REPORT INFORMATION
  Report Type: Report from Study
  Country: US (occurrence: US)
  Receive Date: 20240208
  Receipt Date: 20240208
  Transmission Date: 20240410
  Serious: Yes (Hospitalization)
  Sender: FDA-Public Use
  Company Number: US-ABBVIE-5624228

PATIENT
  Sex: Female

DRUGS (2)
  1. RINVOQ [Suspect]
     Active Substance: UPADACITINIB
     Indication: Colitis ulcerative
     Dosage: LAST ADMIN DATE JAN 2024
     Route: 048
     Dates: start: 20240119
  2. RINVOQ [Suspect]
     Active Substance: UPADACITINIB
     Indication: Colitis ulcerative
     Route: 048
     Dates: start: 202401

REACTIONS (5)
  - Feeding disorder [Recovering/Resolving]
  - Asthenia [Recovering/Resolving]
  - Muscle spasms [Recovering/Resolving]
  - Flatulence [Recovering/Resolving]
  - Haematochezia [Recovering/Resolving]
